FAERS Safety Report 5168419-1 (Version None)
Quarter: 2006Q4

REPORT INFORMATION
  Report Type: 
  Country: None (occurrence: None)
  Receive Date: 20061208
  Receipt Date: 20061204
  Transmission Date: 20070319
  Serious: Yes (Other)
  Sender: FDA-Public Use
  Company Number: GB-ROCHE-474082

PATIENT
  Age: 71 Year
  Sex: Male
  Weight: 117.4 kg

DRUGS (1)
  1. XENICAL [Suspect]
     Indication: OBESITY
     Route: 048
     Dates: start: 20061106, end: 20061127

REACTIONS (2)
  - CONDITION AGGRAVATED [None]
  - EPILEPSY [None]
